FAERS Safety Report 9437753 (Version 1)
Quarter: 2013Q3

REPORT INFORMATION
  Report Type: Spontaneous
  Country: JP (occurrence: None)
  Receive Date: 20130731
  Receipt Date: 20130731
  Transmission Date: 20140515
  Serious: Yes (Hospitalization)
  Sender: FDA-Public Use
  Company Number: TCI2013A04425

PATIENT
  Age: 64 Year
  Sex: Male

DRUGS (2)
  1. NESINA (ALOGLIPTIN BENZOATE) TABLETS [Suspect]
     Indication: TYPE 2 DIABETES MELLITUS
     Route: 048
  2. PIOGLITAZONE HYDROCHLORIDE (PIOGLITAZONE HYDROCHLORIDE) [Suspect]
     Route: 048

REACTIONS (1)
  - Photosensitivity reaction [None]
